FAERS Safety Report 22204082 (Version 2)
Quarter: 2023Q2

REPORT INFORMATION
  Report Type: Spontaneous
  Country: US (occurrence: US)
  Receive Date: 20230412
  Receipt Date: 20230512
  Transmission Date: 20230721
  Serious: No
  Sender: FDA-Public Use
  Company Number: US-PFIZER INC-PV202300065923

PATIENT
  Age: 64 Year
  Sex: Male

DRUGS (1)
  1. INLYTA [Suspect]
     Active Substance: AXITINIB
     Dosage: 5 MG, 2X/DAY
     Route: 048

REACTIONS (6)
  - Fatigue [Unknown]
  - Dysphonia [Unknown]
  - Blood pressure increased [Unknown]
  - Constipation [Unknown]
  - Hyperacusis [Unknown]
  - Parosmia [Unknown]

NARRATIVE: CASE EVENT DATE: 20230401
